FAERS Safety Report 15321371 (Version 1)
Quarter: 2018Q3

REPORT INFORMATION
  Report Type: Spontaneous
  Country: FR (occurrence: FR)
  Receive Date: 20180827
  Receipt Date: 20180827
  Transmission Date: 20181010
  Serious: Yes (Hospitalization)
  Sender: FDA-Public Use
  Company Number: FR-PFIZER INC-2018341156

PATIENT
  Age: 73 Year
  Sex: Male
  Weight: 97.5 kg

DRUGS (4)
  1. PANITUMUMAB [Suspect]
     Active Substance: PANITUMUMAB
     Indication: COLON CANCER
     Dosage: 420 MG, SINGLE
     Route: 042
     Dates: start: 20180604, end: 20180604
  2. IRINOTECAN HCL [Suspect]
     Active Substance: IRINOTECAN HYDROCHLORIDE
     Indication: COLON CANCER
     Dosage: 320 MG, SINGLE
     Route: 042
     Dates: start: 20180604, end: 20180604
  3. LEDERFOLINE [Suspect]
     Active Substance: LEUCOVORIN CALCIUM
     Indication: COLON CANCER
     Dosage: 820 MG, SINGLE
     Route: 042
     Dates: start: 20180604, end: 20180604
  4. FLUOROURACILE ACCORD [Suspect]
     Active Substance: FLUOROURACIL
     Indication: COLON CANCER
     Dosage: 4900 MG, SINGLE
     Route: 042
     Dates: start: 20180604, end: 20180604

REACTIONS (1)
  - Septic shock [Recovered/Resolved]

NARRATIVE: CASE EVENT DATE: 20180613
